FAERS Safety Report 25012339 (Version 1)
Quarter: 2025Q1

REPORT INFORMATION
  Report Type: Spontaneous
  Country: IN (occurrence: IN)
  Receive Date: 20250226
  Receipt Date: 20250226
  Transmission Date: 20250409
  Serious: Yes (Other)
  Sender: MACLEODS
  Company Number: IN-MLMSERVICE-20250207-PI399727-00322-1

PATIENT

DRUGS (2)
  1. TRAMADOL [Suspect]
     Active Substance: TRAMADOL
     Indication: Analgesic therapy
     Route: 065
  2. TRAMADOL [Suspect]
     Active Substance: TRAMADOL
     Dosage: GRADUALLY INCREASED IN FREQUENCY AND AMOUNT TO AROUND 1000MG DAILY.
     Route: 042

REACTIONS (4)
  - Pain [Unknown]
  - Intentional product misuse [Unknown]
  - Narcotic bowel syndrome [Unknown]
  - Hyperaesthesia [Unknown]
